FAERS Safety Report 7245589-2 (Version None)
Quarter: 2011Q1

REPORT INFORMATION
  Report Type: 
  Country: None (occurrence: None)
  Receive Date: 20110126
  Receipt Date: 20110125
  Transmission Date: 20110831
  Serious: Yes (Hospitalization, Other)
  Sender: FDA-Public Use
  Company Number: US-PFIZER INC-2010139135

PATIENT
  Sex: Female
  Weight: 77 kg

DRUGS (6)
  1. VITAMIN D [Concomitant]
     Dosage: UNK
  2. ACETYLSALICYLIC ACID [Concomitant]
     Dosage: UNK
  3. LISINOPRIL [Suspect]
     Indication: HYPERTENSION
     Dosage: 20 MG, DAILY
     Dates: start: 20100101
  4. PRISTIQ [Suspect]
     Dosage: 100 MG, 1X/DAY
  5. PRISTIQ [Suspect]
     Indication: DEPRESSION
     Dosage: 50 MG, 1X/DAY
  6. COLACE [Concomitant]
     Dosage: UNK

REACTIONS (4)
  - ANXIETY [None]
  - COLITIS ISCHAEMIC [None]
  - BLOOD PRESSURE INADEQUATELY CONTROLLED [None]
  - HEART RATE INCREASED [None]
